FAERS Safety Report 6370488-8 (Version None)
Quarter: 2009Q3

REPORT INFORMATION
  Report Type: 
  Country: None (occurrence: None)
  Receive Date: 20090918
  Receipt Date: 20090904
  Transmission Date: 20100115
  Serious: Yes (Death)
  Sender: FDA-Public Use
  Company Number: 8051713

PATIENT
  Age: 23 Year
  Sex: Male
  Weight: 78 kg

DRUGS (4)
  1. HYDROCODONE BITARTRATE AND ACETAMINOPHEN [Suspect]
     Indication: PAIN
  2. ALPRAZOLAM [Suspect]
     Indication: BIPOLAR DISORDER
     Dates: end: 20090123
  3. OPANA [Suspect]
     Indication: PAIN
     Dates: end: 20090123
  4. TRAMADOL /00599202/ [Suspect]
     Indication: PAIN
     Dates: end: 20090123

REACTIONS (14)
  - ACCIDENTAL OVERDOSE [None]
  - CONJUNCTIVAL HYPERAEMIA [None]
  - DRUG DIVERSION [None]
  - HAEMORRHAGE [None]
  - INCORRECT ROUTE OF DRUG ADMINISTRATION [None]
  - NARCOTIC INTOXICATION [None]
  - NERVOUS SYSTEM DISORDER [None]
  - PETECHIAE [None]
  - RASH PUSTULAR [None]
  - RENAL DISORDER [None]
  - SCRATCH [None]
  - THYMUS DISORDER [None]
  - UNRESPONSIVE TO STIMULI [None]
  - WRONG TECHNIQUE IN DRUG USAGE PROCESS [None]
